FAERS Safety Report 12728453 (Version 1)
Quarter: 2016Q3

REPORT INFORMATION
  Report Type: Spontaneous
  Country: US (occurrence: US)
  Receive Date: 20160907
  Receipt Date: 20160907
  Transmission Date: 20161109
  Serious: Yes (Other)
  Sender: FDA-Public Use
  Company Number: None

PATIENT
  Age: 26 Year
  Sex: Female
  Weight: 100.25 kg

DRUGS (8)
  1. CEFUROXIME. [Concomitant]
     Active Substance: CEFUROXIME
  2. CHERATUSSIN [Concomitant]
     Active Substance: AMMONIUM CHLORIDE\DEXTROMETHORPHAN\SODIUM CITRATE
  3. DULERA [Concomitant]
     Active Substance: FORMOTEROL FUMARATE DIHYDRATE\MOMETASONE FUROATE
  4. LEVOFLOXACIN UNKNOWN [Suspect]
     Active Substance: LEVOFLOXACIN
     Indication: BRONCHITIS
     Route: 048
     Dates: start: 20160808, end: 20160816
  5. LEVAQUIN [Concomitant]
     Active Substance: LEVOFLOXACIN
  6. LEVOFLOXACIN UNKNOWN [Suspect]
     Active Substance: LEVOFLOXACIN
     Indication: PNEUMONIA
     Route: 048
     Dates: start: 20160808, end: 20160816
  7. SINGULAIR [Concomitant]
     Active Substance: MONTELUKAST SODIUM
  8. Z PACK [Concomitant]
     Active Substance: AZITHROMYCIN DIHYDRATE

REACTIONS (3)
  - Rash [None]
  - Pneumonia [None]
  - Pain [None]

NARRATIVE: CASE EVENT DATE: 20160815
